FAERS Safety Report 5990271-2 (Version None)
Quarter: 2008Q4

REPORT INFORMATION
  Report Type: 
  Country: None (occurrence: None)
  Receive Date: 20081211
  Receipt Date: 20081201
  Transmission Date: 20090506
  Serious: Yes (Other)
  Sender: FDA-Public Use
  Company Number: IT-AMGEN-US321604

PATIENT
  Sex: Female

DRUGS (2)
  1. ENBREL [Suspect]
     Indication: ANKYLOSING SPONDYLITIS
     Dosage: PRE-FILLED SYRINGE (50 MG WEEKLY)
     Route: 058
     Dates: start: 20060601, end: 20081010
  2. ZESTORETIC [Suspect]
     Indication: DRUG USE FOR UNKNOWN INDICATION
     Dosage: 32.5 MG
     Route: 048
     Dates: start: 20061101

REACTIONS (3)
  - BUTTERFLY RASH [None]
  - ERYTHEMA [None]
  - SKIN LESION [None]
